FAERS Safety Report 10332878 (Version 1)
Quarter: 2014Q3

REPORT INFORMATION
  Report Type: Spontaneous
  Country: DE (occurrence: DE)
  Receive Date: 20140722
  Receipt Date: 20140722
  Transmission Date: 20150326
  Serious: Yes (Other)
  Sender: FDA-Public Use
  Company Number: PHHY2014DE088365

PATIENT
  Sex: Male

DRUGS (2)
  1. VOLTAREN RESINAT [Suspect]
     Active Substance: DICLOFENAC
     Dosage: 75 MG, BID
     Route: 048
     Dates: start: 20140716, end: 20140716
  2. VOLTAREN RESINAT [Suspect]
     Active Substance: DICLOFENAC
     Indication: FIBROMYALGIA
     Dosage: 75 MG, BID
     Route: 048
     Dates: start: 2004, end: 2014

REACTIONS (2)
  - Prostatic specific antigen increased [Recovered/Resolved]
  - Prostate cancer [Recovered/Resolved]

NARRATIVE: CASE EVENT DATE: 2013
